FAERS Safety Report 20829516 (Version 3)
Quarter: 2022Q3

REPORT INFORMATION
  Report Type: Spontaneous
  Country: US (occurrence: US)
  Receive Date: 20220513
  Receipt Date: 20220817
  Transmission Date: 20221027
  Serious: No
  Sender: FDA-Public Use
  Company Number: US-SA-SAC20220512000178

PATIENT
  Age: 25 Year
  Sex: Male

DRUGS (1)
  1. DUPIXENT [Suspect]
     Active Substance: DUPILUMAB
     Dosage: 300 MG, QOW
     Route: 058
     Dates: start: 202202

REACTIONS (2)
  - Pruritus [Unknown]
  - Rash erythematous [Unknown]

NARRATIVE: CASE EVENT DATE: 20220218
